FAERS Safety Report 7513769-4 (Version None)
Quarter: 2011Q2

REPORT INFORMATION
  Report Type: 
  Country: None (occurrence: None)
  Receive Date: 20110531
  Receipt Date: 20110517
  Transmission Date: 20111010
  Serious: Yes (Other)
  Sender: FDA-Public Use
  Company Number: GB-MYLANLABS-2011S1009195

PATIENT
  Age: 53 Year
  Sex: Female

DRUGS (2)
  1. OMEPRAZOLE [Suspect]
     Indication: PRODUCT USED FOR UNKNOWN INDICATION
     Route: 048
  2. SODIUM CHLORIDE [Suspect]
     Indication: NUTRITIONAL SUPPORT
     Route: 042

REACTIONS (5)
  - HYPERVENTILATION [None]
  - METABOLIC ACIDOSIS [None]
  - BLOOD PH DECREASED [None]
  - BLOOD BICARBONATE DECREASED [None]
  - PCO2 DECREASED [None]
